FAERS Safety Report 18653994 (Version 2)
Quarter: 2022Q3

REPORT INFORMATION
  Report Type: Spontaneous
  Country: US (occurrence: US)
  Receive Date: 20201223
  Receipt Date: 20220909
  Transmission Date: 20221027
  Serious: Yes (Other)
  Sender: FDA-Public Use
  Company Number: US-SAARTEMIS-SAC202012180491

PATIENT
  Age: 43 Year
  Sex: Female

DRUGS (1)
  1. ZANTAC [Suspect]
     Active Substance: RANITIDINE HYDROCHLORIDE
     Indication: Dyspepsia
     Dosage: 300 MG, QD
     Dates: start: 200401, end: 202001

REACTIONS (4)
  - Skin cancer [Not Recovered/Not Resolved]
  - Brain neoplasm [Unknown]
  - Neoplasm malignant [Unknown]
  - Skin disorder [Unknown]

NARRATIVE: CASE EVENT DATE: 20180101
